FAERS Safety Report 9538018 (Version 1)
Quarter: 2013Q3

REPORT INFORMATION
  Report Type: Spontaneous
  Country: TW (occurrence: TW)
  Receive Date: 20130919
  Receipt Date: 20130919
  Transmission Date: 20140515
  Serious: Yes (Death, Hospitalization)
  Sender: FDA-Public Use
  Company Number: TW-JNJFOC-20130908009

PATIENT
  Age: 44 Year
  Sex: Female

DRUGS (2)
  1. ACETAMINOPHEN [Suspect]
     Route: 048
  2. ACETAMINOPHEN [Suspect]
     Indication: COMPLETED SUICIDE
     Route: 048

REACTIONS (12)
  - Pancreatitis [Fatal]
  - Pancytopenia [Fatal]
  - Hepatorenal failure [Fatal]
  - Shock [Recovering/Resolving]
  - Hypothermia [Recovering/Resolving]
  - Hyperglycaemia [Recovering/Resolving]
  - Rhabdomyolysis [Recovering/Resolving]
  - Suicide attempt [Unknown]
  - Overdose [Unknown]
  - Coma [Recovering/Resolving]
  - Hepatotoxicity [Unknown]
  - Metabolic acidosis [Recovering/Resolving]
